FAERS Safety Report 4961704-5 (Version None)
Quarter: 2006Q2

REPORT INFORMATION
  Report Type: 
  Country: None (occurrence: None)
  Receive Date: 20060322
  Receipt Date: 20060313
  Transmission Date: 20061013
  Serious: Yes (Hospitalization)
  Sender: FDA-Public Use
  Company Number: 200609945

PATIENT
  Age: 20 Year
  Sex: Female

DRUGS (2)
  1. RHOPHYLAC (ANTI-D IMMUNOGLOBULIN) [Suspect]
     Indication: ALLOIMMUNISATION
     Dosage: 200 UG DAILY IV
     Route: 042
     Dates: start: 20060218, end: 20060218
  2. RHOPHYLAC (ANTI-D IMMUNOGLOBULIN) [Suspect]
     Indication: PROPHYLAXIS
     Dosage: 200 UG DAILY IV
     Route: 042
     Dates: start: 20060218, end: 20060218

REACTIONS (5)
  - DRUG EXPOSURE DURING PREGNANCY [None]
  - HEART RATE INCREASED [None]
  - HYPOTENSION [None]
  - MALAISE [None]
  - SYNCOPE VASOVAGAL [None]
